FAERS Safety Report 25706605 (Version 1)
Quarter: 2025Q3

REPORT INFORMATION
  Report Type: Other
  Country: US (occurrence: US)
  Receive Date: 20250820
  Receipt Date: 20250820
  Transmission Date: 20251020
  Serious: Yes (Other)
  Sender: Consumer Product Partners
  Company Number: US-Consumer Product Partners, LLC-2182881

PATIENT
  Sex: Female

DRUGS (2)
  1. DANDRUFF SHAMPOO [Suspect]
     Active Substance: PYRITHIONE ZINC
     Indication: Dandruff
  2. DANDRUFF (PYRITHIONE ZINC) [Suspect]
     Active Substance: PYRITHIONE ZINC

REACTIONS (1)
  - Abscess [Recovered/Resolved]
